FAERS Safety Report 15488223 (Version 1)
Quarter: 2018Q4

REPORT INFORMATION
  Report Type: Spontaneous
  Country: US (occurrence: US)
  Receive Date: 20181011
  Receipt Date: 20181011
  Transmission Date: 20190205
  Serious: Yes (Other)
  Sender: FDA-Public Use
  Company Number: US-BAUSCH-BL-2018-026919

PATIENT
  Sex: Male
  Weight: 88.53 kg

DRUGS (2)
  1. OCEAN SALINE NASAL SPRAY [Suspect]
     Active Substance: SODIUM CHLORIDE
     Indication: NASAL DRYNESS
  2. OCEAN SALINE NASAL SPRAY [Suspect]
     Active Substance: SODIUM CHLORIDE
     Indication: NASAL IRRIGATION
     Dosage: STARTED OVER 10 YEARS AGO, TWO SPRAYS IN LEFT NOSTRIL AND TWO SPRAYS IN RIGHT NOSTRIL
     Route: 045

REACTIONS (2)
  - Colorectal cancer [Unknown]
  - Recalled product administered [Not Recovered/Not Resolved]
